FAERS Safety Report 6702957-2 (Version None)
Quarter: 2010Q2

REPORT INFORMATION
  Report Type: 
  Country: None (occurrence: None)
  Receive Date: 20100429
  Receipt Date: 20100421
  Transmission Date: 20101027
  Serious: Yes (Hospitalization, Other)
  Sender: FDA-Public Use
  Company Number: US-AMGEN-QUU403656

PATIENT
  Sex: Male
  Weight: 102 kg

DRUGS (6)
  1. SENSIPAR [Suspect]
     Indication: HYPERPARATHYROIDISM SECONDARY
     Route: 048
     Dates: start: 20100113, end: 20100114
  2. SEVELAMER [Concomitant]
     Dates: start: 20090407
  3. SIMVASTATIN [Concomitant]
     Dates: start: 20091105
  4. ATENOLOL [Concomitant]
     Dates: start: 20091202
  5. EPOGEN [Concomitant]
     Dates: start: 20090209
  6. OXYGEN [Concomitant]

REACTIONS (5)
  - ATELECTASIS [None]
  - DYSPNOEA [None]
  - HYPOXIA [None]
  - INTERSTITIAL LUNG DISEASE [None]
  - PYREXIA [None]
